FAERS Safety Report 15107885 (Version 1)
Quarter: 2018Q3

REPORT INFORMATION
  Report Type: Spontaneous
  Country: US (occurrence: US)
  Receive Date: 20180704
  Receipt Date: 20180704
  Transmission Date: 20181010
  Serious: No
  Sender: FDA-Public Use
  Company Number: US-SHIRE-US201823590

PATIENT
  Age: 60 Year
  Sex: Female

DRUGS (1)
  1. XIIDRA [Suspect]
     Active Substance: LIFITEGRAST
     Indication: EYE DISORDER
     Route: 065

REACTIONS (2)
  - Eye disorder [Recovered/Resolved]
  - Adverse reaction [Unknown]
